FAERS Safety Report 5072720-X (Version None)
Quarter: 2006Q3

REPORT INFORMATION
  Report Type: 
  Country: None (occurrence: None)
  Receive Date: 20060807
  Receipt Date: 20060724
  Transmission Date: 20061208
  Serious: Yes (Hospitalization)
  Sender: FDA-Public Use
  Company Number: PHHO2006AR12165

PATIENT
  Age: 67 Year
  Sex: Female

DRUGS (1)
  1. ZELMAC / HTF 919A [Suspect]
     Indication: GASTROINTESTINAL DISORDER
     Dosage: 1.5 MG, BID

REACTIONS (1)
  - ILEUS [None]
